FAERS Safety Report 5816336-3 (Version None)
Quarter: 2008Q3

REPORT INFORMATION
  Report Type: 
  Country: None (occurrence: None)
  Receive Date: 20080716
  Receipt Date: 20080220
  Transmission Date: 20090109
  Serious: Yes (Other)
  Sender: FDA-Public Use
  Company Number: 2008US000627

PATIENT
  Age: 65 Year
  Sex: Female
  Weight: 90.7 kg

DRUGS (3)
  1. ADENOSCAN [Suspect]
     Indication: CARDIAC STRESS TEST
     Dosage: 30 MG, IV NOS
     Route: 042
     Dates: start: 20071026, end: 20071026
  2. ATENOLOL [Concomitant]
  3. TYLENOL [Concomitant]

REACTIONS (1)
  - ATRIOVENTRICULAR BLOCK [None]
